FAERS Safety Report 23169074 (Version 1)
Quarter: 2023Q4

REPORT INFORMATION
  Report Type: Spontaneous
  Country: US (occurrence: US)
  Receive Date: 20231110
  Receipt Date: 20231110
  Transmission Date: 20240110
  Serious: No
  Sender: FDA-Public Use
  Company Number: US-Accord-279340

PATIENT
  Sex: Female

DRUGS (4)
  1. SPIRONOLACTONE [Suspect]
     Active Substance: SPIRONOLACTONE
     Indication: Androgen therapy
     Dosage: STRENGTH: 50MG
     Route: 048
  2. LEVOTHYROXINE [Concomitant]
     Active Substance: LEVOTHYROXINE
     Dosage: 0.75MCG /ONCE A DAY
  3. WARFARIN [Concomitant]
     Active Substance: WARFARIN
     Dosage: 5MG ONCE DAY
  4. ATORVASTATIN [Concomitant]
     Active Substance: ATORVASTATIN
     Dosage: 40 MG/ONCE A DAY

REACTIONS (5)
  - Nausea [Not Recovered/Not Resolved]
  - Product odour abnormal [Unknown]
  - Product taste abnormal [Unknown]
  - Off label use [Unknown]
  - Retching [Not Recovered/Not Resolved]
